FAERS Safety Report 24891391 (Version 1)
Quarter: 2025Q1

REPORT INFORMATION
  Report Type: Spontaneous
  Country: CN (occurrence: CN)
  Receive Date: 20250127
  Receipt Date: 20250127
  Transmission Date: 20250409
  Serious: Yes (Life-Threatening, Other)
  Sender: BAYER HEALTHCARE PHARMACEUTICALS INC.
  Company Number: CN-BAYER-2025A012339

PATIENT
  Age: 65 Year
  Sex: Female

DRUGS (4)
  1. ULTRAVIST [Suspect]
     Active Substance: IOPROMIDE
     Indication: Aortogram
     Route: 013
     Dates: start: 20250122, end: 20250122
  2. ULTRAVIST [Suspect]
     Active Substance: IOPROMIDE
     Indication: Angiogram cerebral
  3. ULTRAVIST [Suspect]
     Active Substance: IOPROMIDE
     Indication: Peripheral arteriogram
  4. ULTRAVIST [Suspect]
     Active Substance: IOPROMIDE
     Indication: Arteriogram carotid

REACTIONS (18)
  - Anaphylactic shock [Recovering/Resolving]
  - Heart rate increased [Not Recovered/Not Resolved]
  - Respiratory rate increased [Not Recovered/Not Resolved]
  - Blood pressure decreased [Recovering/Resolving]
  - Confusional state [Recovering/Resolving]
  - Unresponsive to stimuli [Recovered/Resolved]
  - Miosis [None]
  - Pupillary reflex impaired [None]
  - Dyspnoea [Recovered/Resolved]
  - Productive cough [None]
  - Oxygen saturation decreased [None]
  - Coma [Recovered/Resolved]
  - Respiratory depth increased [None]
  - Immobile [None]
  - Erythema [None]
  - Cough [None]
  - Somnolence [None]
  - Dysarthria [Recovered/Resolved]

NARRATIVE: CASE EVENT DATE: 20250122
